FAERS Safety Report 22211982 (Version 1)
Quarter: 2023Q2

REPORT INFORMATION
  Report Type: Spontaneous
  Country: MY (occurrence: MY)
  Receive Date: 20230414
  Receipt Date: 20230414
  Transmission Date: 20230721
  Serious: Yes (Other)
  Sender: FDA-Public Use
  Company Number: MY-TORRENT-00000355

PATIENT
  Age: 75 Year
  Sex: Male

DRUGS (2)
  1. SILDENAFIL [Suspect]
     Active Substance: SILDENAFIL
     Indication: Pulmonary hypertension
     Dosage: UNKNOWN
     Route: 065
     Dates: start: 2017
  2. WARFARIN [Suspect]
     Active Substance: WARFARIN
     Indication: Pulmonary hypertension
     Dosage: UNKNOWN
     Route: 065
     Dates: start: 2017

REACTIONS (2)
  - Interstitial lung disease [Recovered/Resolved]
  - Emphysema [Recovered/Resolved]

NARRATIVE: CASE EVENT DATE: 20180101
